FAERS Safety Report 12925277 (Version 3)
Quarter: 2017Q4

REPORT INFORMATION
  Report Type: Spontaneous
  Country: US (occurrence: US)
  Receive Date: 20161109
  Receipt Date: 20171220
  Transmission Date: 20180320
  Serious: Yes (Hospitalization)
  Sender: FDA-Public Use
  Company Number: US-PFIZER INC-2016515104

PATIENT
  Age: 16 Year
  Sex: Female

DRUGS (1)
  1. METRONIDAZOLE. [Suspect]
     Active Substance: METRONIDAZOLE
     Indication: BLASTOCYSTIS INFECTION
     Dosage: 750 MG, 3X/DAY
     Route: 048

REACTIONS (1)
  - Serum sickness-like reaction [Recovering/Resolving]
